FAERS Safety Report 9587080 (Version 2)
Quarter: 2013Q4

REPORT INFORMATION
  Report Type: Spontaneous
  Country: IT (occurrence: ES)
  Receive Date: 20131003
  Receipt Date: 20131028
  Transmission Date: 20140711
  Serious: Yes (Hospitalization)
  Sender: FDA-Public Use
  Company Number: ES-FRI-1000049253

PATIENT
  Age: 48 Year
  Sex: Male

DRUGS (6)
  1. NEBIVOLOL [Suspect]
     Dosage: 5 MG
     Dates: start: 200912, end: 201012
  2. ENALAPRIL [Suspect]
     Indication: HYPERTENSION
     Dosage: 10 MG
     Dates: start: 20101214, end: 20101220
  3. ESPIDIFEN [Suspect]
     Dosage: 1200 MG
     Route: 048
     Dates: start: 201008, end: 20101220
  4. NOLOTIL [Suspect]
     Dosage: 1725 MG
     Route: 048
     Dates: start: 20101214, end: 20101220
  5. VOLTAREN [Suspect]
     Dosage: 150 MG
     Route: 048
     Dates: start: 20101214, end: 20101220
  6. TONOPAN [Concomitant]
     Dosage: 6 DF
     Route: 048
     Dates: start: 201008, end: 20101220

REACTIONS (2)
  - Renal failure acute [Recovering/Resolving]
  - Drug interaction [Recovering/Resolving]
